FAERS Safety Report 13677896 (Version 14)
Quarter: 2019Q3

REPORT INFORMATION
  Report Type: Report from Study
  Country: AU (occurrence: AU)
  Receive Date: 20170622
  Receipt Date: 20190814
  Transmission Date: 20191004
  Serious: Yes (Life-Threatening, Hospitalization, Other)
  Sender: FDA-Public Use
  Company Number: AU-SA-2017SA039168

PATIENT
  Age: 46 Year
  Sex: Female
  Weight: 102.5 kg

DRUGS (22)
  1. ERGOCALCIFEROL. [Concomitant]
     Active Substance: ERGOCALCIFEROL
     Dosage: UNK UNK,UNK
     Route: 065
  2. ENOXAPARIN [Concomitant]
     Active Substance: ENOXAPARIN
     Dosage: 40 MG,UNK
     Route: 058
  3. DEXAMETHASONE. [Concomitant]
     Active Substance: DEXAMETHASONE
     Dosage: 4 MG,PRN
     Route: 042
  4. PROCHLORPERAZINE. [Concomitant]
     Active Substance: PROCHLORPERAZINE
     Dosage: 12.5 MG,PRN
     Route: 030
  5. THYROXIN [Concomitant]
     Active Substance: LEVOTHYROXINE
     Dosage: 50 MG,UNK
     Route: 065
  6. TRAMADOL. [Concomitant]
     Active Substance: TRAMADOL
     Dosage: UNK UNK,UNK
     Route: 065
     Dates: start: 20180129
  7. MAXOLON [Concomitant]
     Active Substance: METOCLOPRAMIDE HYDROCHLORIDE
     Dosage: 10 MG,UNK
     Route: 048
     Dates: start: 20180116
  8. PARACETAMOL [Concomitant]
     Active Substance: ACETAMINOPHEN
     Dosage: 1 G,UNK
     Route: 042
  9. ALEMTUZUMAB [Suspect]
     Active Substance: ALEMTUZUMAB
     Dosage: 12 MG, QD
     Route: 041
     Dates: start: 20180607
  10. OXYBUTYNIN. [Concomitant]
     Active Substance: OXYBUTYNIN CHLORIDE
     Dosage: 25 MG,UNK
     Route: 065
     Dates: start: 20180129
  11. PROPOFOL. [Concomitant]
     Active Substance: PROPOFOL
     Dosage: UNK UNK,UNK
     Route: 065
  12. ALEMTUZUMAB [Suspect]
     Active Substance: ALEMTUZUMAB
     Indication: RELAPSING MULTIPLE SCLEROSIS
     Dosage: 12 MG, QD
     Route: 041
     Dates: start: 20170206, end: 20170210
  13. TEMAZEPAM. [Concomitant]
     Active Substance: TEMAZEPAM
     Dosage: 10 MG,UNK
     Route: 065
     Dates: start: 20180130
  14. DROPERIDOL. [Concomitant]
     Active Substance: DROPERIDOL
     Dosage: UNK UNK,PRN
     Route: 042
  15. MIDAZOLAM [Concomitant]
     Active Substance: MIDAZOLAM HYDROCHLORIDE
     Dosage: UNK UNK,UNK
     Route: 065
  16. DICLOFENAC [Concomitant]
     Active Substance: DICLOFENAC
     Dosage: 50 MG,UNK
     Route: 065
  17. FENTANYL. [Concomitant]
     Active Substance: FENTANYL
     Dosage: UNK UNK,UNK
     Route: 042
  18. OXYBUTYNIN. [Concomitant]
     Active Substance: OXYBUTYNIN CHLORIDE
     Dosage: 5 MG,UNK
     Route: 065
     Dates: start: 20180129
  19. PARACETAMOL [Concomitant]
     Active Substance: ACETAMINOPHEN
     Dosage: 4 G,UNK
     Route: 048
     Dates: start: 20180129, end: 201802
  20. METOCLOPRAMIDE. [Concomitant]
     Active Substance: METOCLOPRAMIDE
     Dosage: 10 MG,PRN
  21. LIDOCAINE. [Concomitant]
     Active Substance: LIDOCAINE
     Dosage: UNK UNK,UNK
     Route: 065
  22. ONDANSETRON [Concomitant]
     Active Substance: ONDANSETRON
     Dosage: 4 MG,PRN
     Route: 042

REACTIONS (22)
  - Breast haematoma [Recovered/Resolved]
  - Febrile neutropenia [Recovered/Resolved]
  - Headache [Recovering/Resolving]
  - Mastitis [Recovered/Resolved]
  - Anaemia [Recovered/Resolved]
  - Insomnia [Recovered/Resolved]
  - Poor venous access [Recovered/Resolved]
  - Neutropenia [Recovered/Resolved]
  - Fatigue [Recovered/Resolved]
  - Leukopenia [Not Recovered/Not Resolved]
  - Breast cellulitis [Recovering/Resolving]
  - Pyrexia [Recovered/Resolved]
  - Pain [Recovered/Resolved]
  - Leukopenia [Recovered/Resolved]
  - Breast enlargement [Recovered/Resolved]
  - Anaemia [Not Recovered/Not Resolved]
  - Neutropenia [Recovered/Resolved]
  - Breast cancer stage II [Not Recovered/Not Resolved]
  - Mastitis [Recovered/Resolved]
  - Basedow^s disease [Recovered/Resolved]
  - Mastitis [Recovered/Resolved]
  - Multiple sclerosis relapse [Not Recovered/Not Resolved]

NARRATIVE: CASE EVENT DATE: 20170206
